FAERS Safety Report 18471709 (Version 3)
Quarter: 2020Q4

REPORT INFORMATION
  Report Type: Report from Study
  Country: None (occurrence: CA)
  Receive Date: 20201105
  Receipt Date: 20201214
  Transmission Date: 20210114
  Serious: Yes (Hospitalization, Other)
  Sender: FDA-Public Use
  Company Number: CA-ABBVIE-20K-028-3635824-00

PATIENT
  Sex: Male

DRUGS (1)
  1. SKYRIZI [Suspect]
     Active Substance: RISANKIZUMAB-RZAA
     Indication: PSORIASIS
     Route: 058
     Dates: start: 20200710

REACTIONS (4)
  - Ascites [Recovering/Resolving]
  - Hepatic cirrhosis [Unknown]
  - Abdominal distension [Recovering/Resolving]
  - Portal hypertension [Unknown]

NARRATIVE: CASE EVENT DATE: 2020
